FAERS Safety Report 25708171 (Version 2)
Quarter: 2025Q3

REPORT INFORMATION
  Report Type: Spontaneous
  Country: US (occurrence: US)
  Receive Date: 20250820
  Receipt Date: 20250910
  Transmission Date: 20251021
  Serious: Yes (Death, Other)
  Sender: NUVATION BIO
  Company Number: US-Nuvation Bio-2182914

PATIENT
  Sex: Female

DRUGS (1)
  1. IBTROZI [Suspect]
     Active Substance: TALETRECTINIB ADIPATE
     Indication: Breast cancer stage IV

REACTIONS (1)
  - Disease progression [Fatal]
